FAERS Safety Report 6441662-7 (Version None)
Quarter: 2009Q4

REPORT INFORMATION
  Report Type: 
  Country: None (occurrence: None)
  Receive Date: 20091112
  Receipt Date: 20091106
  Transmission Date: 20100525
  Serious: Yes (Hospitalization)
  Sender: FDA-Public Use
  Company Number: ABNCW-09-0504

PATIENT
  Age: 66 Year
  Sex: Female
  Weight: 68.4 kg

DRUGS (4)
  1. ABRAXANE [Suspect]
     Indication: BREAST CANCER METASTATIC
     Dosage: 100 MG/M2, WEEKLY X 3, 1 WEEK OFF), INTRAVENOUS
     Route: 042
     Dates: start: 20090701, end: 20090930
  2. AVASTIN [Suspect]
     Indication: BREAST CANCER METASTATIC
     Dosage: 700 MG
     Dates: start: 20090701, end: 20090909
  3. ZOMETA [Concomitant]
  4. XANAX [Concomitant]

REACTIONS (3)
  - CARDIO-RESPIRATORY ARREST [None]
  - HEPATIC FAILURE [None]
  - PROTHROMBIN TIME PROLONGED [None]
